FAERS Safety Report 17440388 (Version 1)
Quarter: 2020Q1

REPORT INFORMATION
  Report Type: Spontaneous
  Country: US (occurrence: US)
  Receive Date: 20200220
  Receipt Date: 20200220
  Transmission Date: 20200409
  Serious: Yes (Other)
  Sender: FDA-Public Use
  Company Number: US-CELGENEUS-USA-20200205329

PATIENT
  Sex: Female

DRUGS (8)
  1. POMALYST [Suspect]
     Active Substance: POMALIDOMIDE
     Dosage: 2 MG - 3 MG
     Route: 048
     Dates: start: 201502
  2. POMALYST [Suspect]
     Active Substance: POMALIDOMIDE
     Dosage: 4 MG - 3 MG
     Route: 048
     Dates: start: 201401
  3. POMALYST [Suspect]
     Active Substance: POMALIDOMIDE
     Dosage: 1 MILLIGRAM
     Route: 048
     Dates: start: 202001
  4. POMALYST [Suspect]
     Active Substance: POMALIDOMIDE
     Indication: PLASMA CELL MYELOMA
     Dosage: 2 MILLIGRAM
     Route: 048
     Dates: start: 201306
  5. POMALYST [Suspect]
     Active Substance: POMALIDOMIDE
     Dosage: 4 MG - 3 MG
     Route: 048
     Dates: start: 201601
  6. POMALYST [Suspect]
     Active Substance: POMALIDOMIDE
     Dosage: 3 MG - 4 MG
     Route: 048
     Dates: start: 20160805
  7. POMALYST [Suspect]
     Active Substance: POMALIDOMIDE
     Dosage: 4 MG - 3 MG
     Route: 048
     Dates: start: 201711
  8. POMALYST [Suspect]
     Active Substance: POMALIDOMIDE
     Dosage: 4 MG - 2 MG
     Route: 048
     Dates: start: 201909

REACTIONS (2)
  - Influenza [Unknown]
  - Pneumonia [Unknown]
